FAERS Safety Report 4799940-3 (Version None)
Quarter: 2005Q4

REPORT INFORMATION
  Report Type: 
  Country: None (occurrence: None)
  Receive Date: 20051012
  Receipt Date: 20051012
  Transmission Date: 20060501
  Serious: Yes (Hospitalization, Other)
  Sender: FDA-Public Use
  Company Number: None

PATIENT
  Sex: Female
  Weight: 77 kg

DRUGS (5)
  1. DAUNORUBICIN HCL [Suspect]
     Indication: ACUTE LYMPHOCYTIC LEUKAEMIA
     Dosage: SEE IMAGE
     Route: 042
     Dates: start: 20050927, end: 20050927
  2. VINCRISTINE SULFATE [Suspect]
     Dosage: SEE IMAGE
     Route: 042
     Dates: start: 20050927, end: 20050927
  3. PREDNISONE TAB [Suspect]
     Dosage: SEE IMAGE
     Route: 048
     Dates: start: 20050927
  4. L-ASPARAGINASE [Suspect]
     Dosage: SEE IMAGE
     Route: 030
     Dates: start: 20050927, end: 20050930
  5. METHOTREXATE [Suspect]
     Dosage: SEE IMAGE
     Route: 037
     Dates: start: 20050927

REACTIONS (5)
  - ARRHYTHMIA [None]
  - ATRIAL FIBRILLATION [None]
  - HYPOCALCAEMIA [None]
  - HYPOTENSION [None]
  - TACHYCARDIA [None]
